FAERS Safety Report 5248208-X (Version None)
Quarter: 2007Q1

REPORT INFORMATION
  Report Type: 
  Country: None (occurrence: None)
  Receive Date: 20070227
  Receipt Date: 20060720
  Transmission Date: 20070707
  Serious: No
  Sender: FDA-Public Use
  Company Number: US-BRISTOL-MYERS SQUIBB COMPANY-13449053

PATIENT
  Age: 50 Year
  Sex: Female

DRUGS (10)
  1. GLUCOPHAGE [Suspect]
     Indication: DIABETES MELLITUS
     Route: 048
  2. ENALAPRIL MALEATE [Concomitant]
  3. AVANDIA [Concomitant]
  4. PRAVACHOL [Concomitant]
  5. ESTRACE [Concomitant]
     Dates: start: 19900101
  6. PROTONIX [Concomitant]
  7. ASPIRIN [Concomitant]
  8. CENTRUM SILVER [Concomitant]
  9. CALCIUM [Concomitant]
  10. VITAMIN E [Concomitant]

REACTIONS (2)
  - BLOOD GLUCOSE INCREASED [None]
  - GLYCOSYLATED HAEMOGLOBIN INCREASED [None]
